FAERS Safety Report 8351203-5 (Version None)
Quarter: 2012Q2

REPORT INFORMATION
  Report Type: 
  Country: None (occurrence: None)
  Receive Date: 20120510
  Receipt Date: 20120501
  Transmission Date: 20120825
  Serious: Yes (Hospitalization)
  Sender: FDA-Public Use
  Company Number: NL-MEDIMMUNE-MEDI-0014872

PATIENT
  Sex: Male
  Weight: 2.79 kg

DRUGS (7)
  1. SYNAGIS [Suspect]
     Indication: PREMATURE BABY
     Route: 030
     Dates: start: 20120109, end: 20120203
  2. TETANUS VACCINE [Concomitant]
  3. RANITIDINE HCL [Concomitant]
  4. POLIO VACCINE [Concomitant]
  5. FERROFUMARATE [Concomitant]
     Indication: PREMATURE BABY
  6. DIPTHERIA VACCINE [Concomitant]
  7. WHOOPING COUGH VACCINE [Concomitant]

REACTIONS (5)
  - GASTROOESOPHAGEAL REFLUX DISEASE [None]
  - ASTHENIA [None]
  - HYPOPNOEA [None]
  - CYANOSIS [None]
  - OXYGEN SATURATION DECREASED [None]
